FAERS Safety Report 9217688 (Version 1)
Quarter: 2013Q2

REPORT INFORMATION
  Report Type: Report from Study
  Country: US (occurrence: US)
  Receive Date: 20130408
  Receipt Date: 20130408
  Transmission Date: 20140414
  Serious: Yes (Hospitalization)
  Sender: FDA-Public Use
  Company Number: US-PFIZER INC-2013104516

PATIENT
  Age: 67 Year
  Sex: Female
  Weight: 49 kg

DRUGS (4)
  1. BLINDED CELECOXIB [Suspect]
     Indication: NEOPLASM
     Dosage: UNK, BID DAYS 1 TO 21, CYCLE 1-6 AND CYCLE 7+
     Route: 048
     Dates: start: 20121130, end: 20121203
  2. BLINDED PLACEBO [Suspect]
     Indication: NEOPLASM
     Dosage: UNK, BID DAYS 1 TO 21, CYCLE 1-6 AND CYCLE 7+
     Route: 048
     Dates: start: 20121130, end: 20121203
  3. CARBOPLATIN [Suspect]
     Indication: NEOPLASM
     Dosage: AUC=6.0 DAY 1, EVERY 3 WEEKS, CYCLE 1-6
     Route: 042
     Dates: start: 20121130
  4. PEMETREXED [Suspect]
     Dosage: 500 MG/M2, DAY 1, EVERY 3 WEEKS, CYCLE 1-6
     Route: 042
     Dates: start: 20121130

REACTIONS (2)
  - Dehydration [Recovered/Resolved with Sequelae]
  - Fatigue [Recovered/Resolved with Sequelae]
